FAERS Safety Report 19869240 (Version 4)
Quarter: 2021Q4

REPORT INFORMATION
  Report Type: Report from Study
  Country: US (occurrence: US)
  Receive Date: 20210922
  Receipt Date: 20211008
  Transmission Date: 20220303
  Serious: Yes (Life-Threatening, Hospitalization, Other)
  Sender: FDA-Public Use
  Company Number: US-PFIZER INC-202101229036

PATIENT
  Age: 2 Year
  Sex: Male
  Weight: 21.9 kg

DRUGS (13)
  1. BINIMETINIB [Suspect]
     Active Substance: BINIMETINIB
     Indication: Astrocytoma
     Dosage: 19 MG, BID
     Route: 048
     Dates: start: 20201103, end: 20210910
  2. KEFLEX [Concomitant]
     Active Substance: CEPHALEXIN
     Indication: Rash maculo-papular
     Dosage: 250 MG/5 ML
     Route: 048
     Dates: start: 20210911
  3. VITAMIN D3 [Concomitant]
     Active Substance: CHOLECALCIFEROL
     Indication: Vitamin D deficiency
     Dosage: UNK
     Route: 048
     Dates: start: 20200919
  4. FLUOCINONIDE [Concomitant]
     Active Substance: FLUOCINONIDE
     Indication: Ingrowing nail
     Dosage: UNK
     Route: 061
     Dates: start: 20210304
  5. HYDROCORTISONE [Concomitant]
     Active Substance: HYDROCORTISONE
     Indication: Adrenal insufficiency
     Dosage: 2 MG/1 ML
     Route: 048
     Dates: start: 20210402
  6. LACTOBACILLUS GG [Concomitant]
     Indication: Supplementation therapy
     Dosage: UNK
     Route: 048
     Dates: start: 20210618
  7. PARAFFIN [Concomitant]
     Active Substance: PARAFFIN
     Indication: Dry skin
     Dosage: UNK
     Route: 061
     Dates: start: 20210525
  8. PARAFFIN [Concomitant]
     Active Substance: PARAFFIN
     Indication: Skin fissures
  9. PREDNISOLONE [Concomitant]
     Active Substance: PREDNISOLONE
     Indication: Rash maculo-papular
     Dosage: 15 MG/5 ML
     Route: 048
     Dates: start: 20210914
  10. PROTOPIC [Concomitant]
     Active Substance: TACROLIMUS
     Indication: Dry skin
     Dosage: UNK
     Route: 061
     Dates: start: 20210304
  11. PROTOPIC [Concomitant]
     Active Substance: TACROLIMUS
     Indication: Skin fissures
  12. TRIAMCINOLONE [Concomitant]
     Active Substance: TRIAMCINOLONE
     Indication: Rash
     Dosage: UNK
     Route: 061
     Dates: start: 20210528
  13. TRIAMCINOLONE [Concomitant]
     Active Substance: TRIAMCINOLONE
     Indication: Eczema

REACTIONS (1)
  - Adrenal insufficiency [Recovered/Resolved]

NARRATIVE: CASE EVENT DATE: 20210917
